FAERS Safety Report 26117519 (Version 1)
Quarter: 2025Q4

REPORT INFORMATION
  Report Type: Report from Study
  Country: AE (occurrence: AE)
  Receive Date: 20251203
  Receipt Date: 20251203
  Transmission Date: 20260118
  Serious: Yes (Hospitalization)
  Sender: AMGEN
  Company Number: AE-AMGEN-ARESL2025235418

PATIENT
  Age: 55 Year
  Sex: Male

DRUGS (1)
  1. MVASI [Suspect]
     Active Substance: BEVACIZUMAB-AWWB
     Indication: Colorectal cancer
     Dosage: 500 MILLIGRAM
     Route: 065
     Dates: start: 20251011

REACTIONS (3)
  - Hepatic mass [Unknown]
  - Dehydration [Unknown]
  - Renal disorder [Unknown]

NARRATIVE: CASE EVENT DATE: 20251101
